FAERS Safety Report 8908497 (Version 1)
Quarter: 2012Q4

REPORT INFORMATION
  Report Type: 
  Country: US (occurrence: US)
  Receive Date: 20121114
  Receipt Date: 20121114
  Transmission Date: 20130627
  Serious: No
  Sender: FDA-Public Use
  Company Number: US-ASTRAZENECA-2012SE80312

PATIENT
  Age: 50 Year
  Sex: Female

DRUGS (3)
  1. SEROQUEL [Suspect]
     Indication: AGITATION
     Route: 048
  2. SEROQUEL [Suspect]
     Indication: ILL-DEFINED DISORDER
     Route: 048
  3. METFORMIN [Concomitant]

REACTIONS (4)
  - Adverse event [Unknown]
  - Drug dose omission [Unknown]
  - Off label use [Unknown]
  - Off label use [Unknown]
